FAERS Safety Report 8161041-4 (Version None)
Quarter: 2012Q1

REPORT INFORMATION
  Report Type: 
  Country: None (occurrence: None)
  Receive Date: 20120224
  Receipt Date: 20120214
  Transmission Date: 20120608
  Serious: Yes (Hospitalization)
  Sender: FDA-Public Use
  Company Number: US-BIOGENIDEC-2008BI025295

PATIENT
  Age: 52 Year
  Sex: Female

DRUGS (4)
  1. AVONEX [Suspect]
     Indication: MULTIPLE SCLEROSIS
     Route: 030
     Dates: start: 20010101
  2. AVONEX [Suspect]
     Route: 030
     Dates: start: 20020214
  3. AVONEX [Suspect]
     Route: 030
     Dates: end: 20080101
  4. AVONEX [Suspect]
     Route: 030
     Dates: start: 20080101

REACTIONS (4)
  - DEVICE DISLOCATION [None]
  - MEDICAL DEVICE COMPLICATION [None]
  - SPONDYLOLISTHESIS [None]
  - CYST [None]
